FAERS Safety Report 4461442-1 (Version None)
Quarter: 2004Q3

REPORT INFORMATION
  Report Type: 
  Country: None (occurrence: None)
  Receive Date: 20040928
  Receipt Date: 20040909
  Transmission Date: 20050211
  Serious: Yes (Life-Threatening)
  Sender: FDA-Public Use
  Company Number: GB-MERCK-0409GBR00096

PATIENT
  Age: 75 Year
  Sex: Female
  Weight: 51 kg

DRUGS (3)
  1. ALBUTEROL [Concomitant]
     Route: 065
  2. FOSAMAX [Suspect]
     Indication: OSTEOARTHRITIS
     Route: 048
     Dates: start: 20040701, end: 20040101
  3. BECLOMETHASONE DIPROPIONATE [Concomitant]
     Route: 065

REACTIONS (4)
  - GASTRITIS [None]
  - HAEMOGLOBIN DECREASED [None]
  - INFLAMMATION [None]
  - UPPER GASTROINTESTINAL HAEMORRHAGE [None]
